FAERS Safety Report 13229715 (Version 7)
Quarter: 2017Q2

REPORT INFORMATION
  Report Type: Report from Study
  Country: CA (occurrence: CA)
  Receive Date: 20170214
  Receipt Date: 20170524
  Transmission Date: 20170830
  Serious: Yes (Death, Life-Threatening, Hospitalization, Other)
  Sender: FDA-Public Use
  Company Number: CA-ALEXION-A201701257

PATIENT
  Age: 69 Year
  Sex: Female
  Weight: 93 kg

DRUGS (2)
  1. SOLIRIS [Suspect]
     Active Substance: ECULIZUMAB
     Indication: HAEMOLYTIC URAEMIC SYNDROME
     Dosage: 1200 MG, QW
     Route: 042
     Dates: start: 20170201, end: 20170421
  2. SOLIRIS [Suspect]
     Active Substance: ECULIZUMAB
     Dosage: 1200 MG, Q2W
     Route: 042

REACTIONS (9)
  - Hypersomnia [Unknown]
  - Blood albumin decreased [Unknown]
  - Pleural effusion [Fatal]
  - Renal failure [Unknown]
  - Inappropriate schedule of drug administration [Not Recovered/Not Resolved]
  - Oedema [Not Recovered/Not Resolved]
  - Infection [Recovering/Resolving]
  - Speech disorder [Unknown]
  - Incorrect dose administered [Recovered/Resolved]

NARRATIVE: CASE EVENT DATE: 20170301
